FAERS Safety Report 17160614 (Version 1)
Quarter: 2019Q4

REPORT INFORMATION
  Report Type: Report from Study
  Country: CZ (occurrence: CZ)
  Receive Date: 20191216
  Receipt Date: 20191216
  Transmission Date: 20200122
  Serious: Yes (Death)
  Sender: FDA-Public Use
  Company Number: CZ-UNITED THERAPEUTICS-UNT-2019-020790

PATIENT

DRUGS (1)
  1. TREPROSTINIL SODIUM (SQ) [Suspect]
     Active Substance: TREPROSTINIL SODIUM
     Indication: PRODUCT USED FOR UNKNOWN INDICATION
     Dosage: UNK, CONTINUING
     Route: 058
     Dates: start: 20161202

REACTIONS (1)
  - Death [Fatal]

NARRATIVE: CASE EVENT DATE: 20191203
